FAERS Safety Report 18072051 (Version 1)
Quarter: 2020Q3

REPORT INFORMATION
  Report Type: Spontaneous
  Country: PK (occurrence: PK)
  Receive Date: 20200725
  Receipt Date: 20200725
  Transmission Date: 20201103
  Serious: No
  Sender: FDA-Public Use
  Company Number: None

PATIENT
  Age: 24 Year
  Sex: Female
  Weight: 54 kg

DRUGS (2)
  1. ORLIS 120MG CAPSULES [Suspect]
     Active Substance: ORLISTAT
     Indication: OBESITY
     Dosage: ?          QUANTITY:30 CAPSULE(S);?
     Route: 048
     Dates: start: 20200707, end: 20200725
  2. SURBEX Z [Concomitant]

REACTIONS (5)
  - Dyspnoea [None]
  - Rash pruritic [None]
  - Rash erythematous [None]
  - Abdominal pain upper [None]
  - Nausea [None]

NARRATIVE: CASE EVENT DATE: 20200720
